FAERS Safety Report 10082656 (Version 1)
Quarter: 2014Q2

REPORT INFORMATION
  Report Type: Spontaneous
  Country: GB (occurrence: GB)
  Receive Date: 20140416
  Receipt Date: 20140416
  Transmission Date: 20141212
  Serious: Yes (Life-Threatening)
  Sender: FDA-Public Use
  Company Number: GB-MYLANLABS-2014S1008323

PATIENT
  Age: 90 Year
  Sex: Female
  Weight: 79 kg

DRUGS (9)
  1. MELOXICAM [Suspect]
     Route: 048
     Dates: start: 20131127
  2. CLOBETASONE BUTYRATE [Concomitant]
     Dates: start: 20131223, end: 20140120
  3. DIGOXIN [Concomitant]
     Dates: start: 20131127
  4. FUROSEMIDE [Concomitant]
     Dates: start: 20131127
  5. KENALOG /00031902/ [Concomitant]
     Dates: start: 20140109
  6. LIDOCAINE [Concomitant]
     Dates: start: 20140109, end: 20140110
  7. RANITIDINE [Concomitant]
     Dates: start: 20131127
  8. SPIRONOLACTONE [Concomitant]
     Dates: start: 20131127
  9. WARFARIN SODIUM [Concomitant]
     Dates: start: 20131205

REACTIONS (3)
  - Hyponatraemia [Recovered/Resolved]
  - Disease progression [Unknown]
  - Renal failure acute [Recovered/Resolved]
